FAERS Safety Report 8534423-6 (Version None)
Quarter: 2012Q3

REPORT INFORMATION
  Report Type: 
  Country: None (occurrence: None)
  Receive Date: 20120724
  Receipt Date: 20120720
  Transmission Date: 20120928
  Serious: Yes (Other)
  Sender: FDA-Public Use
  Company Number: PHHY2012AU062431

PATIENT

DRUGS (1)
  1. CLOZARIL [Suspect]
     Dates: start: 19900101

REACTIONS (3)
  - EYE DISORDER [None]
  - VISUAL IMPAIRMENT [None]
  - MACULOPATHY [None]
